FAERS Safety Report 21077940 (Version 1)
Quarter: 2022Q3

REPORT INFORMATION
  Report Type: Report from Study
  Country: US (occurrence: US)
  Receive Date: 20220713
  Receipt Date: 20220713
  Transmission Date: 20221027
  Serious: No
  Sender: FDA-Public Use
  Company Number: US-VANDA PHARMACEUTICALS, INC-2021TASUS005425

PATIENT
  Sex: Male
  Weight: 111.11 kg

DRUGS (10)
  1. HETLIOZ [Suspect]
     Active Substance: TASIMELTEON
     Indication: Circadian rhythm sleep disorder
     Dosage: 20 MILLIGRAM, QHS (ONE HOUR BEFORE BEDTIME)
     Route: 048
     Dates: start: 20210226
  2. AMLODIPINE BESYLATE [Concomitant]
     Active Substance: AMLODIPINE BESYLATE
     Indication: Product used for unknown indication
     Dosage: UNK
  3. FENOFIBRATE [Concomitant]
     Active Substance: FENOFIBRATE
     Indication: Product used for unknown indication
     Dosage: UNK
  4. BACITRACIN;HYDROCORTISONE;NEOMYCIN SULFATE;POLYMYXIN B [Concomitant]
     Indication: Product used for unknown indication
     Dosage: UNK
  5. ERGOCALCIFEROL [Concomitant]
     Active Substance: ERGOCALCIFEROL
     Indication: Product used for unknown indication
     Dosage: UNK
  6. RIZATRIPTAN [Concomitant]
     Active Substance: RIZATRIPTAN
     Indication: Product used for unknown indication
     Dosage: UNK
  7. FISH OIL [Concomitant]
     Active Substance: FISH OIL
     Indication: Product used for unknown indication
     Dosage: UNK
  8. EMGALITY [Concomitant]
     Active Substance: GALCANEZUMAB-GNLM
     Indication: Product used for unknown indication
     Dosage: UNK 120 MG/ML PEN INJCTR
  9. ATENOLOL [Concomitant]
     Active Substance: ATENOLOL
     Indication: Product used for unknown indication
     Dosage: UNK
  10. ARMODAFINIL [Concomitant]
     Active Substance: ARMODAFINIL
     Indication: Product used for unknown indication
     Dosage: UNK

REACTIONS (4)
  - Middle insomnia [Unknown]
  - Sluggishness [Unknown]
  - Somnolence [Unknown]
  - Product dose omission issue [Unknown]
